FAERS Safety Report 7040925-4 (Version None)
Quarter: 2010Q4

REPORT INFORMATION
  Report Type: 
  Country: None (occurrence: None)
  Receive Date: 20101013
  Receipt Date: 20101004
  Transmission Date: 20110411
  Serious: Yes (Hospitalization)
  Sender: FDA-Public Use
  Company Number: US-US-EMD SERONO, INC.-7011606

PATIENT
  Sex: Female
  Weight: 51 kg

DRUGS (10)
  1. REBIF [Suspect]
     Indication: MULTIPLE SCLEROSIS
     Route: 058
     Dates: start: 20100621
  2. TOPAMAX [Concomitant]
     Indication: MIGRAINE
     Route: 048
     Dates: start: 19960101
  3. FIORICET [Concomitant]
     Indication: MIGRAINE
     Route: 048
  4. FIORICET [Concomitant]
     Indication: HEADACHE
  5. AMBIEN [Concomitant]
     Indication: INSOMNIA
     Route: 048
  6. CLONZAEPAM [Concomitant]
     Route: 048
  7. LITHIUM CARBONATE CONTROLLED RELEASE [Concomitant]
     Route: 048
  8. RIBOFLAVIN TAB [Concomitant]
     Route: 048
  9. TRAZODONE HCL [Concomitant]
     Indication: INSOMNIA
     Route: 048
  10. ZANAFLEX [Concomitant]
     Indication: MUSCLE SPASTICITY
     Route: 048

REACTIONS (6)
  - HEADACHE [None]
  - INJECTION SITE ERYTHEMA [None]
  - INJECTION SITE HAEMATOMA [None]
  - INJECTION SITE PAIN [None]
  - MIGRAINE [None]
  - MULTIPLE SCLEROSIS RELAPSE [None]
